FAERS Safety Report 6159301-1 (Version None)
Quarter: 2009Q2

REPORT INFORMATION
  Report Type: 
  Country: None (occurrence: None)
  Receive Date: 20090417
  Receipt Date: 20090413
  Transmission Date: 20091009
  Serious: Yes (Life-Threatening, Hospitalization)
  Sender: FDA-Public Use
  Company Number: RO-ABBOTT-09P-135-0567966-00

PATIENT
  Age: 32 Year
  Sex: Female

DRUGS (4)
  1. REDUCTIL [Suspect]
     Indication: OBESITY
     Route: 048
  2. ANTICOAGULANT [Concomitant]
     Indication: DRUG USE FOR UNKNOWN INDICATION
  3. LAXATIVE TEA [Concomitant]
     Indication: DRUG USE FOR UNKNOWN INDICATION
  4. CONTRACEPTIVE [Concomitant]
     Indication: DRUG USE FOR UNKNOWN INDICATION

REACTIONS (3)
  - CARDIO-RESPIRATORY ARREST [None]
  - ELECTROLYTE IMBALANCE [None]
  - LOSS OF CONSCIOUSNESS [None]
